FAERS Safety Report 5013800-4 (Version None)
Quarter: 2006Q2

REPORT INFORMATION
  Report Type: 
  Country: None (occurrence: None)
  Receive Date: 20060530
  Receipt Date: 20060526
  Transmission Date: 20061013
  Serious: Yes (Life-Threatening, Hospitalization)
  Sender: FDA-Public Use
  Company Number: US-SANOFI-SYNTHELABO-F01200601285

PATIENT
  Sex: Female

DRUGS (4)
  1. AVASTIN [Suspect]
     Route: 042
  2. LEUCOVORIN [Suspect]
     Route: 042
  3. FLUOROURACIL [Suspect]
     Dosage: 400MG/M2 IV BOLUS AND 600MG/M2 CONTINUOUS INFUSION Q2W
     Route: 042
  4. OXALIPLATIN [Suspect]
     Indication: COLON CANCER
     Route: 042

REACTIONS (1)
  - RENAL FAILURE ACUTE [None]
